FAERS Safety Report 17846281 (Version 1)
Quarter: 2020Q2

REPORT INFORMATION
  Report Type: Spontaneous
  Country: US (occurrence: US)
  Receive Date: 20200601
  Receipt Date: 20200601
  Transmission Date: 20200714
  Serious: No
  Sender: FDA-Public Use
  Company Number: None

PATIENT
  Age: 69 Year
  Sex: Female
  Weight: 90 kg

DRUGS (11)
  1. ADAPTAGENS [Concomitant]
  2. SELENIUM [Concomitant]
     Active Substance: SELENIUM
  3. CALCIUM [Concomitant]
     Active Substance: CALCIUM
  4. COD  LIVER OIL [Concomitant]
     Active Substance: COD LIVER OIL
  5. MAGNESIUM [Concomitant]
     Active Substance: MAGNESIUM
  6. NP THYROID [Suspect]
     Active Substance: LEVOTHYROXINE\LIOTHYRONINE
     Indication: HYPOTHYROIDISM
     Dosage: ?          QUANTITY:1 TABLET(S);?
     Route: 048
     Dates: start: 20181001, end: 20200524
  7. HCL [Concomitant]
  8. ZINC. [Concomitant]
     Active Substance: ZINC
  9. EYE SUPPLEMENT [Concomitant]
  10. VITAMIN B-COMPLEX [Concomitant]
     Active Substance: DEXPANTHENOL\NIACINAMIDE\PYRIDOXINE HYDROCHLORIDE\RIBOFLAVIN 5^-PHOSPHATE SODIUM\THIAMINE HYDROCHLORIDE
  11. VITAMIN C [Concomitant]
     Active Substance: ASCORBIC ACID

REACTIONS (2)
  - Chest pain [None]
  - Chest discomfort [None]

NARRATIVE: CASE EVENT DATE: 20200505
